APPROVED DRUG PRODUCT: MYCOPHENOLATE SODIUM
Active Ingredient: MYCOPHENOLATE SODIUM
Strength: EQ 360MG BASE
Dosage Form/Route: TABLET, DELAYED RELEASE;ORAL
Application: A211173 | Product #002 | TE Code: AB
Applicant: CONCORD BIOTECH LTD
Approved: Dec 13, 2019 | RLD: No | RS: No | Type: RX